FAERS Safety Report 9549659 (Version 1)
Quarter: 2013Q3

REPORT INFORMATION
  Report Type: Spontaneous
  Country: FR (occurrence: FR)
  Receive Date: 20130924
  Receipt Date: 20130924
  Transmission Date: 20140515
  Serious: Yes (Hospitalization)
  Sender: FDA-Public Use
  Company Number: FR-ELI_LILLY_AND_COMPANY-FR201309004459

PATIENT
  Age: 62 Year
  Sex: Male

DRUGS (2)
  1. PROZAC [Suspect]
     Indication: CEREBROVASCULAR ACCIDENT
     Dosage: 1 DF, UNKNOWN
     Route: 048
     Dates: start: 20130531, end: 20130626
  2. AMLOR [Concomitant]
     Indication: HYPERTENSION
     Dosage: 1 DF, UNKNOWN
     Dates: start: 2000

REACTIONS (2)
  - Extrapyramidal disorder [Unknown]
  - Off label use [Unknown]
